FAERS Safety Report 6639686-X (Version None)
Quarter: 2010Q1

REPORT INFORMATION
  Report Type: 
  Country: None (occurrence: None)
  Receive Date: 20100318
  Receipt Date: 20100227
  Transmission Date: 20100710
  Serious: Yes (Death, Hospitalization)
  Sender: FDA-Public Use
  Company Number: CA-BAYER-200210724BCA

PATIENT
  Age: 68 Year
  Sex: Female
  Weight: 71 kg

DRUGS (23)
  1. RAF KINASE INHIBITOR (200MG BID X 28 DAYS Q 4 WEEKS) [Suspect]
     Indication: MYELODYSPLASTIC SYNDROME
     Route: 048
     Dates: start: 20020325, end: 20020408
  2. NEUPOGEN [Concomitant]
     Indication: UNEVALUABLE EVENT
     Dates: start: 20020201
  3. DILANTIN [Concomitant]
     Indication: UNEVALUABLE EVENT
     Dates: start: 19900101
  4. ELTROXIN [Concomitant]
     Indication: UNEVALUABLE EVENT
     Dates: start: 19990101
  5. FRAGMIN [Concomitant]
     Indication: UNEVALUABLE EVENT
     Dates: start: 20010101
  6. ACEBUTOLOL [Concomitant]
     Indication: UNEVALUABLE EVENT
     Dates: start: 19980101
  7. VIOXX [Concomitant]
     Indication: UNEVALUABLE EVENT
     Dates: start: 20010101
  8. TORADOL [Concomitant]
     Indication: PAIN
     Dates: start: 20020405, end: 20020405
  9. GENTAMICIN [Concomitant]
     Indication: PROPHYLAXIS
     Dates: start: 20020405, end: 20020405
  10. HYDROCHLOROTHIAZIDE WITH AMILORIDE [Concomitant]
     Indication: DIURETIC THERAPY
     Dates: start: 20020405, end: 20020405
  11. GRAVOL TAB [Concomitant]
     Indication: PAIN
     Dates: start: 20020405, end: 20020405
  12. TYLENOL-500 [Concomitant]
     Indication: PAIN
     Dates: start: 20020406, end: 20020412
  13. TYLENOL-500 [Concomitant]
     Dates: start: 20020420, end: 20020420
  14. MAXERAN [Concomitant]
     Indication: NAUSEA
     Dates: start: 20020405, end: 20020414
  15. MAXERAN [Concomitant]
     Dates: start: 20020420, end: 20020420
  16. DILAUDID [Concomitant]
     Indication: PAIN
     Dates: start: 20020406, end: 20020406
  17. CODEINE SULFATE [Concomitant]
     Indication: PAIN
     Dates: start: 20020408
  18. LEVAQUIN [Concomitant]
     Indication: URINARY TRACT INFECTION
     Dates: start: 20020408, end: 20020421
  19. ONDANSETRON [Concomitant]
     Indication: NAUSEA
     Dates: start: 20020423
  20. RED BLOOD CELLS [Concomitant]
     Indication: UNEVALUABLE EVENT
     Route: 042
     Dates: start: 20020403, end: 20020403
  21. RED BLOOD CELLS [Concomitant]
     Route: 042
     Dates: start: 20020409, end: 20020409
  22. RED BLOOD CELLS [Concomitant]
     Route: 042
     Dates: start: 20020416, end: 20020416
  23. RED BLOOD CELLS [Concomitant]
     Route: 042
     Dates: start: 20020420, end: 20020420

REACTIONS (16)
  - ABDOMINAL DISTENSION [None]
  - ABDOMINAL PAIN UPPER [None]
  - CONFUSIONAL STATE [None]
  - CONTUSION [None]
  - CONVULSION [None]
  - DYSPHAGIA [None]
  - FLANK PAIN [None]
  - HYPOTENSION [None]
  - HYPOXIA [None]
  - NAUSEA [None]
  - PAIN [None]
  - PNEUMONIA [None]
  - PYREXIA [None]
  - SEPSIS [None]
  - SPLENIC INFARCTION [None]
  - VOMITING [None]
